FAERS Safety Report 9166719 (Version 1)
Quarter: 2013Q1

REPORT INFORMATION
  Report Type: Spontaneous
  Country: US (occurrence: US)
  Receive Date: 20130316
  Receipt Date: 20130316
  Transmission Date: 20140127
  Serious: No
  Sender: FDA-Public Use
  Company Number: US-009507513-1303USA002987

PATIENT
  Sex: Male
  Weight: 94.33 kg

DRUGS (10)
  1. BOCEPREVIR [Suspect]
     Indication: CHRONIC HEPATITIS C
     Dosage: 4 DF, TID
     Route: 048
     Dates: start: 20110810, end: 20120417
  2. PEGINTERFERON ALFA-2A [Suspect]
     Indication: CHRONIC HEPATITIS C
     Dosage: 90 MICROGRAM, QD
     Dates: start: 20110810
  3. RIBAVIRIN [Suspect]
     Indication: CHRONIC HEPATITIS C
     Dosage: 1200 MG, QD
     Route: 048
     Dates: start: 20110810
  4. HYDROCHLOROTHIAZIDE [Concomitant]
  5. WARFARIN SODIUM [Concomitant]
  6. METFORMIN HYDROCHLORIDE [Concomitant]
  7. METOPROLOL [Concomitant]
  8. ENALAPRIL MALEATE [Concomitant]
  9. AMLODIPINE BESYLATE [Concomitant]
  10. BUSPAR [Concomitant]

REACTIONS (8)
  - Platelet count decreased [Unknown]
  - Dysgeusia [Unknown]
  - Weight decreased [Unknown]
  - Fatigue [Unknown]
  - Dyspnoea exertional [Unknown]
  - Weight decreased [Unknown]
  - Epistaxis [Unknown]
  - Diarrhoea [Unknown]
